FAERS Safety Report 10644966 (Version 1)
Quarter: 2014Q4

REPORT INFORMATION
  Report Type: Spontaneous
  Country: US (occurrence: None)
  Receive Date: 20141210
  Receipt Date: 20141210
  Transmission Date: 20150529
  Serious: Yes (Other)
  Sender: FDA-Public Use
  Company Number: None

PATIENT
  Age: 67 Year
  Sex: Female
  Weight: 73.03 kg

DRUGS (1)
  1. JANUMET [Suspect]
     Active Substance: METFORMIN HYDROCHLORIDE\SITAGLIPTIN PHOSPHATE
     Indication: BLOOD GLUCOSE ABNORMAL
     Dosage: 1 TABLET, ONCE DAILY, TAKEN BY MOUTH
     Route: 048

REACTIONS (4)
  - Abdominal pain [None]
  - Nausea [None]
  - Middle insomnia [None]
  - Cold sweat [None]

NARRATIVE: CASE EVENT DATE: 20141207
